FAERS Safety Report 5341355-3 (Version None)
Quarter: 2007Q2

REPORT INFORMATION
  Report Type: 
  Country: None (occurrence: None)
  Receive Date: 20070530
  Receipt Date: 20070411
  Transmission Date: 20071010
  Serious: Yes (Other)
  Sender: FDA-Public Use
  Company Number: 4409

PATIENT
  Age: 38 Year
  Sex: Female

DRUGS (1)
  1. AMNESTEEM [Suspect]
     Indication: ACNE
     Dosage: 40 MG, BID, PO
     Route: 048
     Dates: start: 20060822, end: 20070409

REACTIONS (3)
  - DRUG EXPOSURE DURING PREGNANCY [None]
  - UNINTENDED PREGNANCY [None]
  - VASECTOMY [None]
